FAERS Safety Report 4369157-5 (Version None)
Quarter: 2004Q2

REPORT INFORMATION
  Report Type: 
  Country: None (occurrence: None)
  Receive Date: 20040527
  Receipt Date: 20040427
  Transmission Date: 20050107
  Serious: Yes (Hospitalization)
  Sender: FDA-Public Use
  Company Number: USA040465952

PATIENT
  Age: 55 Year
  Sex: Female
  Weight: 98 kg

DRUGS (4)
  1. HUMALOG [Suspect]
     Indication: DIABETES MELLITUS
  2. HUMULIN N [Suspect]
     Indication: DIABETES MELLITUS
     Dates: start: 19840101, end: 20040301
  3. ACTOS [Concomitant]
  4. LANTUS [Concomitant]

REACTIONS (5)
  - FALL [None]
  - INTERVERTEBRAL DISC DEGENERATION [None]
  - INTERVERTEBRAL DISC PROTRUSION [None]
  - POSTOPERATIVE INFECTION [None]
  - WEIGHT DECREASED [None]
